FAERS Safety Report 19918917 (Version 15)
Quarter: 2022Q4

REPORT INFORMATION
  Report Type: Report from Study
  Country: CO (occurrence: CO)
  Receive Date: 20211004
  Receipt Date: 20221003
  Transmission Date: 20230113
  Serious: Yes (Hospitalization, Other)
  Sender: FDA-Public Use
  Company Number: PHHY2019CO086177

PATIENT
  Sex: Female
  Weight: 55 kg

DRUGS (9)
  1. ELTROMBOPAG OLAMINE [Suspect]
     Active Substance: ELTROMBOPAG OLAMINE
     Indication: Immune thrombocytopenia
     Dosage: 25 MG, QD
     Route: 048
  2. ELTROMBOPAG OLAMINE [Suspect]
     Active Substance: ELTROMBOPAG OLAMINE
     Dosage: 50 MG, QD (BY MOUTH)
     Route: 048
     Dates: start: 20190413
  3. ELTROMBOPAG OLAMINE [Suspect]
     Active Substance: ELTROMBOPAG OLAMINE
     Dosage: 2 DF, QD (100 MG/2 TABLETS) (EVERY 24 HOURS)
     Route: 048
  4. ELTROMBOPAG OLAMINE [Suspect]
     Active Substance: ELTROMBOPAG OLAMINE
     Dosage: 100 MG, QD
     Route: 048
  5. ELTROMBOPAG OLAMINE [Suspect]
     Active Substance: ELTROMBOPAG OLAMINE
     Dosage: 50 MG, QD
     Route: 048
     Dates: start: 20220413
  6. ELTROMBOPAG OLAMINE [Suspect]
     Active Substance: ELTROMBOPAG OLAMINE
     Dosage: 50 MG, QD
     Route: 048
  7. ELTROMBOPAG OLAMINE [Suspect]
     Active Substance: ELTROMBOPAG OLAMINE
     Dosage: UNK
     Route: 048
  8. ELTROMBOPAG OLAMINE [Suspect]
     Active Substance: ELTROMBOPAG OLAMINE
     Dosage: 50 MG, QD
     Route: 048
  9. FOLIC ACID [Concomitant]
     Active Substance: FOLIC ACID
     Indication: Product used for unknown indication
     Dosage: UNK, QD
     Route: 048
     Dates: start: 202105

REACTIONS (21)
  - Haemorrhage [Recovered/Resolved]
  - Colitis [Unknown]
  - Large intestine perforation [Unknown]
  - General physical condition abnormal [Unknown]
  - Malaise [Unknown]
  - Movement disorder [Unknown]
  - Postoperative wound complication [Unknown]
  - Peritonitis [Unknown]
  - Wound infection pseudomonas [Unknown]
  - Syncope [Unknown]
  - Feeling abnormal [Unknown]
  - Wound [Unknown]
  - Wound complication [Unknown]
  - Haemoglobin decreased [Unknown]
  - Blood potassium increased [Unknown]
  - Diarrhoea haemorrhagic [Unknown]
  - Platelet count decreased [Unknown]
  - Uterine prolapse [Unknown]
  - Bladder prolapse [Unknown]
  - Memory impairment [Unknown]
  - Incorrect dose administered [Unknown]
